FAERS Safety Report 24632281 (Version 1)
Quarter: 2024Q4

REPORT INFORMATION
  Report Type: Spontaneous
  Country: US (occurrence: None)
  Receive Date: 20241118
  Receipt Date: 20241118
  Transmission Date: 20250114
  Serious: Yes (Hospitalization)
  Sender: Public
  Company Number: None

PATIENT
  Age: 84 Year
  Sex: Male
  Weight: 75 kg

DRUGS (1)
  1. WARFARIN SODIUM [Suspect]
     Active Substance: WARFARIN SODIUM
     Indication: Atrial fibrillation
     Dosage: OTHER FREQUENCY : QWEEK;?
     Route: 048
     Dates: start: 20180801

REACTIONS (4)
  - Subarachnoid haemorrhage [None]
  - Subdural haematoma [None]
  - Fall [None]
  - International normalised ratio increased [None]

NARRATIVE: CASE EVENT DATE: 20240829
